FAERS Safety Report 23277035 (Version 1)
Quarter: 2023Q4

REPORT INFORMATION
  Report Type: Spontaneous
  Country: US (occurrence: US)
  Receive Date: 20231208
  Receipt Date: 20231208
  Transmission Date: 20240110
  Serious: Yes (Other)
  Sender: FDA-Public Use
  Company Number: US-MYLANLABS-2023M1129383

PATIENT
  Age: 38 Year
  Sex: Male
  Weight: 145.14 kg

DRUGS (5)
  1. VALSARTAN [Suspect]
     Active Substance: VALSARTAN
     Indication: Hypertension
     Dosage: 160 MILLIGRAM
     Route: 065
     Dates: start: 20180424, end: 20180704
  2. ZYRTEC [Concomitant]
     Active Substance: CETIRIZINE HYDROCHLORIDE
     Indication: Seasonal allergy
     Dosage: 20 MILLIGRAM AS NEEDED (2 TABLET DAILY)
     Route: 065
     Dates: start: 2019
  3. PHENYLEPHRINE [Concomitant]
     Active Substance: PHENYLEPHRINE HYDROCHLORIDE
     Indication: Seasonal allergy
     Dosage: DOSAGE AND FREQUENCY VARIED BASED ON NEED
     Route: 045
     Dates: start: 2017
  4. FAMOTIDINE [Concomitant]
     Active Substance: FAMOTIDINE
     Indication: Gastrooesophageal reflux disease
     Dosage: 1 DOSAGE FORM, QD (1 TABLET DAILY)
     Route: 065
     Dates: start: 2019
  5. FLONASE [Concomitant]
     Active Substance: FLUTICASONE PROPIONATE
     Indication: Hypersensitivity
     Dosage: AS NEEDED (1 SPRAY DAILY)
     Route: 065
     Dates: start: 2019

REACTIONS (1)
  - Rectal cancer [Recovered/Resolved]

NARRATIVE: CASE EVENT DATE: 20210909
